FAERS Safety Report 7701045-6 (Version None)
Quarter: 2011Q3

REPORT INFORMATION
  Report Type: 
  Country: None (occurrence: None)
  Receive Date: 20110817
  Receipt Date: 20110809
  Transmission Date: 20111222
  Serious: Yes (Death)
  Sender: FDA-Public Use
  Company Number: JPI-P-000210

PATIENT
  Age: 44 Year
  Sex: Female

DRUGS (6)
  1. TEGASEROD MALEATE [Concomitant]
  2. XYREM [Suspect]
     Indication: CATAPLEXY
     Dosage: 7 GM, ORAL
     Route: 048
     Dates: start: 20051001
  3. PREGABALIN [Concomitant]
  4. DIAZEPAM [Concomitant]
  5. RAMELTEON [Concomitant]
  6. TIZANIDINE HCL [Concomitant]

REACTIONS (2)
  - SUDDEN ONSET OF SLEEP [None]
  - DROWNING [None]
